FAERS Safety Report 9206279 (Version 1)
Quarter: 2013Q2

REPORT INFORMATION
  Report Type: Spontaneous
  Country: US (occurrence: None)
  Receive Date: 20130401
  Receipt Date: 20130401
  Transmission Date: 20140414
  Serious: Yes (Hospitalization)
  Sender: FDA-Public Use
  Company Number: 20130149

PATIENT
  Age: 13 Year
  Sex: Male

DRUGS (2)
  1. OLANZAPINE [Suspect]
     Indication: BIPOLAR DISORDER
  2. LAMOTRIGINE, 200 MG DAY UNKNOWN UNK/UNK [Concomitant]

REACTIONS (3)
  - Electroencephalogram abnormal [None]
  - Mood swings [None]
  - Disturbance in attention [None]
